FAERS Safety Report 18407698 (Version 1)
Quarter: 2020Q4

REPORT INFORMATION
  Report Type: Spontaneous
  Country: SK (occurrence: SK)
  Receive Date: 20201021
  Receipt Date: 20201021
  Transmission Date: 20210114
  Serious: Yes (Other)
  Sender: FDA-Public Use
  Company Number: SK-BRISTOL-MYERS SQUIBB COMPANY-BMS-2020-085473

PATIENT
  Age: 49 Year
  Sex: Male

DRUGS (12)
  1. ELIQUIS [Suspect]
     Active Substance: APIXABAN
     Indication: PRODUCT USED FOR UNKNOWN INDICATION
     Dosage: 2.5 MILLIGRAM, BID
     Route: 065
     Dates: start: 202002, end: 202003
  2. ALECENSA [Suspect]
     Active Substance: ALECTINIB HYDROCHLORIDE
     Dosage: 150 MG, FOR 5 DAYS COMPLETELY DISCONTINUED
     Route: 065
     Dates: start: 20200320
  3. ALECENSA [Suspect]
     Active Substance: ALECTINIB HYDROCHLORIDE
     Indication: NON-SMALL CELL LUNG CANCER
     Dosage: 600 MILLIGRAM, 0.5 DAY
     Route: 065
     Dates: start: 201906
  4. ALECENSA [Suspect]
     Active Substance: ALECTINIB HYDROCHLORIDE
     Dosage: 150 MG, 2-0-2
     Route: 065
     Dates: start: 20200629
  5. ALECENSA [Suspect]
     Active Substance: ALECTINIB HYDROCHLORIDE
     Dosage: 300 MILLIGRAM, 0.5 DAY
     Route: 065
  6. ALECENSA [Suspect]
     Active Substance: ALECTINIB HYDROCHLORIDE
     Dosage: 150 MG, 3-0-3
     Route: 065
     Dates: start: 20200724
  7. FRAXIPARINE [Suspect]
     Active Substance: NADROPARIN CALCIUM
     Indication: PRODUCT USED FOR UNKNOWN INDICATION
     Dosage: UNK
     Route: 065
     Dates: start: 202002
  8. FRAXIPARINE [Suspect]
     Active Substance: NADROPARIN CALCIUM
     Dosage: UNK
     Route: 065
     Dates: start: 202003
  9. ALECENSA [Suspect]
     Active Substance: ALECTINIB HYDROCHLORIDE
     Dosage: 150 MG, 4-0-4
     Route: 065
     Dates: start: 20200616
  10. ALECENSA [Suspect]
     Active Substance: ALECTINIB HYDROCHLORIDE
     Dosage: 150 MG, 3-0-3
     Route: 065
     Dates: start: 20200526
  11. ALECENSA [Suspect]
     Active Substance: ALECTINIB HYDROCHLORIDE
     Indication: NON-SMALL CELL LUNG CANCER
     Dosage: 150 MG, 4-0-4
     Route: 065
     Dates: start: 20200302
  12. ALECENSA [Suspect]
     Active Substance: ALECTINIB HYDROCHLORIDE
     Dosage: 150 MG, 3-0-3
     Route: 065
     Dates: start: 20200331, end: 20200519

REACTIONS (5)
  - Blood bilirubin increased [Recovered/Resolved]
  - Alanine aminotransferase increased [Recovered/Resolved]
  - Gamma-glutamyltransferase increased [Recovered/Resolved]
  - Aspartate aminotransferase increased [Recovered/Resolved]
  - Liver disorder [Recovered/Resolved]

NARRATIVE: CASE EVENT DATE: 2020
